FAERS Safety Report 4266976-0 (Version None)
Quarter: 2004Q1

REPORT INFORMATION
  Report Type: 
  Country: None (occurrence: None)
  Receive Date: 20040108
  Receipt Date: 20030310
  Transmission Date: 20041129
  Serious: No
  Sender: FDA-Public Use
  Company Number: US-BRISTOL-MYERS SQUIBB COMPANY-12207361

PATIENT
  Age: 75 Year
  Sex: Female

DRUGS (4)
  1. NADOLOL [Suspect]
     Indication: HEART RATE
     Route: 048
  2. FIORICET [Concomitant]
  3. ATIVAN [Concomitant]
  4. FOLIC ACID [Concomitant]

REACTIONS (1)
  - DRUG INEFFECTIVE [None]
